FAERS Safety Report 9279477 (Version 5)
Quarter: 2015Q2

REPORT INFORMATION
  Report Type: Spontaneous
  Country: US (occurrence: US)
  Receive Date: 20130508
  Receipt Date: 20150602
  Transmission Date: 20150821
  Serious: No
  Sender: FDA-Public Use
  Company Number: US-009507513-1305USA002098

PATIENT
  Sex: Male
  Weight: 104.31 kg

DRUGS (1)
  1. PROPECIA [Suspect]
     Active Substance: FINASTERIDE
     Indication: ALOPECIA
     Dosage: 1 MG, UNK
     Route: 048
     Dates: start: 2001, end: 2006

REACTIONS (20)
  - Upper-airway cough syndrome [Unknown]
  - Tonsillar disorder [Unknown]
  - Microcytic anaemia [Unknown]
  - Bacterial disease carrier [Recovered/Resolved]
  - Arthralgia [Unknown]
  - Cognitive disorder [Not Recovered/Not Resolved]
  - Prostatitis [Not Recovered/Not Resolved]
  - Oedema peripheral [Unknown]
  - Orchitis [Not Recovered/Not Resolved]
  - Skin lesion [Recovering/Resolving]
  - Seasonal allergy [Unknown]
  - Blood pressure increased [Unknown]
  - Gynaecomastia [Unknown]
  - Oral herpes [Unknown]
  - Blood testosterone decreased [Not Recovered/Not Resolved]
  - Fatigue [Unknown]
  - Erectile dysfunction [Not Recovered/Not Resolved]
  - Sexual dysfunction [Not Recovered/Not Resolved]
  - Anxiety [Not Recovered/Not Resolved]
  - Depression [Not Recovered/Not Resolved]

NARRATIVE: CASE EVENT DATE: 2001
